FAERS Safety Report 19855527 (Version 1)
Quarter: 2021Q3

REPORT INFORMATION
  Report Type: Spontaneous
  Country: US (occurrence: US)
  Receive Date: 20210916
  Receipt Date: 20210916
  Transmission Date: 20211014
  Serious: Yes (Hospitalization)
  Sender: FDA-Public Use
  Company Number: None

PATIENT
  Age: 76 Year
  Sex: Male
  Weight: 124.5 kg

DRUGS (10)
  1. JANUMET [Concomitant]
     Active Substance: METFORMIN HYDROCHLORIDE\SITAGLIPTIN PHOSPHATE
  2. ASA [Concomitant]
     Active Substance: ASPIRIN
  3. AMLODIPINE [Concomitant]
     Active Substance: AMLODIPINE BESYLATE
  4. PANTOPRAZOLE [Concomitant]
     Active Substance: PANTOPRAZOLE
  5. ALLOPURINOL. [Concomitant]
     Active Substance: ALLOPURINOL
  6. LYRICA [Concomitant]
     Active Substance: PREGABALIN
  7. ATORVASTATIN [Concomitant]
     Active Substance: ATORVASTATIN
  8. REMICADE [Suspect]
     Active Substance: INFLIXIMAB
  9. METHOTREXATE. [Concomitant]
     Active Substance: METHOTREXATE
  10. METOPROLOL SUCCINATE ER [Concomitant]
     Active Substance: METOPROLOL SUCCINATE

REACTIONS (4)
  - Pancreatitis acute [None]
  - Ileus [None]
  - Pancreatitis necrotising [None]
  - Respiratory failure [None]

NARRATIVE: CASE EVENT DATE: 20191205
